FAERS Safety Report 6510209-9 (Version None)
Quarter: 2009Q4

REPORT INFORMATION
  Report Type: 
  Country: None (occurrence: None)
  Receive Date: 20091217
  Receipt Date: 20091208
  Transmission Date: 20100525
  Serious: Yes (Other)
  Sender: FDA-Public Use
  Company Number: AXC-2009-000092

PATIENT
  Age: 18 Year
  Sex: Male

DRUGS (1)
  1. SUCRALFATE [Suspect]
     Indication: DRUG USE FOR UNKNOWN INDICATION
     Dosage: ORAL
     Route: 048
     Dates: start: 20080701, end: 20080801

REACTIONS (1)
  - ERYTHEMA MULTIFORME [None]
